FAERS Safety Report 8305621-1 (Version None)
Quarter: 2012Q2

REPORT INFORMATION
  Report Type: 
  Country: None (occurrence: None)
  Receive Date: 20120423
  Receipt Date: 20120411
  Transmission Date: 20120825
  Serious: Yes (Hospitalization, Other)
  Sender: FDA-Public Use
  Company Number: AT-JNJFOC-20120405125

PATIENT
  Age: 21 Year
  Sex: Male

DRUGS (3)
  1. ETANERCEPT [Suspect]
     Indication: HIDRADENITIS
     Route: 058
  2. INFLIXIMAB, RECOMBINANT [Suspect]
     Indication: HIDRADENITIS
     Route: 042
  3. DAPSONE [Suspect]
     Indication: SKIN DISORDER
     Dosage: DAILY, DURATION 730 DAYS
     Route: 065

REACTIONS (5)
  - METHAEMOGLOBINAEMIA [None]
  - CEREBRAL THROMBOSIS [None]
  - HERPES ZOSTER [None]
  - BRAIN ABSCESS [None]
  - BACTERAEMIA [None]
